FAERS Safety Report 13355231 (Version 6)
Quarter: 2017Q2

REPORT INFORMATION
  Report Type: Report from Study
  Country: US (occurrence: US)
  Receive Date: 20170321
  Receipt Date: 20170523
  Transmission Date: 20170830
  Serious: Yes (Death, Hospitalization, Other)
  Sender: FDA-Public Use
  Company Number: US-GILEAD-2017-0263407

PATIENT
  Age: 83 Year
  Sex: Female
  Weight: 49.89 kg

DRUGS (5)
  1. REMODULIN [Concomitant]
     Active Substance: TREPROSTINIL
  2. AMBRISENTAN [Suspect]
     Active Substance: AMBRISENTAN
     Indication: PULMONARY HYPERTENSION
     Dosage: 10 MG, QD
     Route: 065
     Dates: start: 201510
  3. AMBRISENTAN [Suspect]
     Active Substance: AMBRISENTAN
     Indication: SCLERODERMA
  4. ADCIRCA [Concomitant]
     Active Substance: TADALAFIL
  5. REVATIO [Concomitant]
     Active Substance: SILDENAFIL CITRATE

REACTIONS (8)
  - Acute kidney injury [Fatal]
  - Respiratory failure [Fatal]
  - Failure to thrive [Fatal]
  - Oedema peripheral [Fatal]
  - Diarrhoea [Fatal]
  - Right ventricular failure [Fatal]
  - Haemoptysis [Fatal]
  - Fluid retention [Fatal]

NARRATIVE: CASE EVENT DATE: 20170316
